FAERS Safety Report 15369268 (Version 1)
Quarter: 2018Q3

REPORT INFORMATION
  Report Type: Spontaneous
  Country: US (occurrence: US)
  Receive Date: 20180911
  Receipt Date: 20180911
  Transmission Date: 20181010
  Serious: Yes (Other)
  Sender: FDA-Public Use
  Company Number: US-APOTEX-2018AP020480

PATIENT
  Age: 68 Year
  Sex: Male

DRUGS (8)
  1. ZONISAMIDE. [Suspect]
     Active Substance: ZONISAMIDE
     Indication: ORTHOSTATIC TREMOR
     Dosage: 450 MG, UNK PER DAY
     Route: 065
  2. ZONISAMIDE. [Suspect]
     Active Substance: ZONISAMIDE
     Indication: ESSENTIAL TREMOR
  3. CLONAZEPAM. [Suspect]
     Active Substance: CLONAZEPAM
     Indication: ORTHOSTATIC TREMOR
     Dosage: 0.5 MG, BID
     Route: 065
  4. PROPRANOLOL [Suspect]
     Active Substance: PROPRANOLOL HYDROCHLORIDE
     Indication: ORTHOSTATIC TREMOR
     Dosage: 10 MG, UNK PER DAY
     Route: 065
  5. TOPIRAMATE. [Suspect]
     Active Substance: TOPIRAMATE
     Indication: ORTHOSTATIC TREMOR
     Dosage: 100 MG, UNK PER DAY
     Route: 065
  6. TOPIRAMATE. [Suspect]
     Active Substance: TOPIRAMATE
     Indication: ESSENTIAL TREMOR
  7. PROPRANOLOL [Suspect]
     Active Substance: PROPRANOLOL HYDROCHLORIDE
     Indication: ESSENTIAL TREMOR
  8. CLONAZEPAM. [Suspect]
     Active Substance: CLONAZEPAM
     Indication: ESSENTIAL TREMOR

REACTIONS (2)
  - Drug effect incomplete [Unknown]
  - Drug resistance [Unknown]
